FAERS Safety Report 5170735-4 (Version None)
Quarter: 2006Q4

REPORT INFORMATION
  Report Type: 
  Country: None (occurrence: None)
  Receive Date: 20060919
  Receipt Date: 20060705
  Transmission Date: 20070319
  Serious: No
  Sender: FDA-Public Use
  Company Number: 2006US000510

PATIENT
  Age: 80 Year
  Sex: Male
  Weight: 70.7 kg

DRUGS (4)
  1. VESICARE [Suspect]
     Dosage: 5 MG, ORAL; 10 MG, ORAL
     Route: 048
     Dates: start: 20060216
  2. LIPITOR [Concomitant]
  3. FLOMAX [Concomitant]
  4. VERAPAMIL [Concomitant]

REACTIONS (5)
  - CONSTIPATION [None]
  - DRUG INEFFECTIVE [None]
  - DRY MOUTH [None]
  - HYPOGONADISM [None]
  - NIPPLE PAIN [None]
